FAERS Safety Report 5335135-2 (Version None)
Quarter: 2007Q2

REPORT INFORMATION
  Report Type: 
  Country: None (occurrence: None)
  Receive Date: 20070525
  Receipt Date: 20070516
  Transmission Date: 20071010
  Serious: Yes (Other)
  Sender: FDA-Public Use
  Company Number: US-PFIZER INC-2007040307

PATIENT
  Sex: Male

DRUGS (2)
  1. CHANTIX [Suspect]
     Indication: SMOKING CESSATION THERAPY
     Dosage: FREQ:DAILY
     Route: 048
     Dates: start: 20070501, end: 20070515
  2. VITAMINS [Concomitant]
     Route: 048

REACTIONS (4)
  - BLINDNESS UNILATERAL [None]
  - CATARACT [None]
  - PHOTOPHOBIA [None]
  - VISUAL ACUITY REDUCED [None]
